FAERS Safety Report 13761301 (Version 1)
Quarter: 2017Q3

REPORT INFORMATION
  Report Type: Spontaneous
  Country: CN (occurrence: CN)
  Receive Date: 20170717
  Receipt Date: 20170717
  Transmission Date: 20171127
  Serious: Yes (Other)
  Sender: FDA-Public Use
  Company Number: CN-ABBVIE-17P-035-2041237-00

PATIENT
  Age: 25 Year
  Sex: Male

DRUGS (1)
  1. DEPAKINE CHRONO [Suspect]
     Active Substance: VALPROATE SODIUM
     Indication: EPILEPSY
     Dosage: EXTENDED RELEASE TABLET
     Route: 048
     Dates: start: 20141001

REACTIONS (6)
  - Foaming at mouth [Recovered/Resolved]
  - Gastrointestinal disorder [Not Recovered/Not Resolved]
  - Strabismus [Recovered/Resolved]
  - Frequent bowel movements [Not Recovered/Not Resolved]
  - Epilepsy [Recovered/Resolved]
  - Syncope [Recovered/Resolved]

NARRATIVE: CASE EVENT DATE: 201704
